FAERS Safety Report 6250624-4 (Version None)
Quarter: 2009Q2

REPORT INFORMATION
  Report Type: 
  Country: None (occurrence: None)
  Receive Date: 20090630
  Receipt Date: 20090618
  Transmission Date: 20091009
  Serious: Yes (Death, Other)
  Sender: FDA-Public Use
  Company Number: US-AMGEN-QUU339993

PATIENT
  Sex: Male
  Weight: 91.4 kg

DRUGS (13)
  1. NEULASTA [Suspect]
     Indication: CHEMOTHERAPY
     Route: 058
     Dates: start: 20090118, end: 20090118
  2. DACOGEN [Concomitant]
     Dates: start: 20090113, end: 20090227
  3. FLOMAX [Concomitant]
  4. ASPIRIN [Concomitant]
  5. OMEPRAZOLE [Concomitant]
  6. SIMVASTATIN [Concomitant]
  7. TIMOLOL MALEATE [Concomitant]
  8. LUMIGAN [Concomitant]
  9. CHONDROITIN [Concomitant]
  10. GLUCOSAMINE [Concomitant]
  11. MULTI-VITAMINS [Concomitant]
  12. STOOL SOFTENER [Concomitant]
  13. UNSPECIFIED ANTINEOPLASTIC AGENT [Concomitant]

REACTIONS (5)
  - BONE PAIN [None]
  - LEUKAEMIA [None]
  - PYREXIA [None]
  - RASH [None]
  - URTICARIA [None]
